FAERS Safety Report 10389834 (Version 1)
Quarter: 2014Q3

REPORT INFORMATION
  Report Type: Spontaneous
  Country: US (occurrence: None)
  Receive Date: 20140813
  Receipt Date: 20140813
  Transmission Date: 20150326
  Serious: Yes (Other)
  Sender: FDA-Public Use
  Company Number: VAL_03313_2014

PATIENT

DRUGS (1)
  1. BENAZEPRIL HYDROCHLORIDE. [Suspect]
     Active Substance: BENAZEPRIL HYDROCHLORIDE
     Indication: PRODUCT USED FOR UNKNOWN INDICATION
     Dosage: (15 MG, [10 MG AND 5 MG AND TAKEN, FREQUENCY UNKNOWN, VARIOUS MANUFACTURERS])

REACTIONS (4)
  - Blood pressure decreased [None]
  - Product odour abnormal [None]
  - Renal pain [None]
  - Blood pressure inadequately controlled [None]

NARRATIVE: CASE EVENT DATE: 2013
